FAERS Safety Report 4897378-1 (Version None)
Quarter: 2006Q1

REPORT INFORMATION
  Report Type: 
  Country: None (occurrence: None)
  Receive Date: 20060130
  Receipt Date: 20060130
  Transmission Date: 20060701
  Serious: Yes (Life-Threatening)
  Sender: FDA-Public Use
  Company Number: None

PATIENT
  Age: 65 Year
  Sex: Female
  Weight: 89 kg

DRUGS (1)
  1. PEMETREXED    DAY 1 OF 21 DAY CYCLE., 500M/M2    LILLY [Suspect]
     Indication: NEUROENDOCRINE TUMOUR
     Dosage: 500MG/M2   DAY 1 OF EVERY 21   IV
     Route: 042
     Dates: start: 20051230, end: 20060120

REACTIONS (2)
  - CONDITION AGGRAVATED [None]
  - HYPERCALCAEMIA [None]
